FAERS Safety Report 6669176-X (Version None)
Quarter: 2010Q2

REPORT INFORMATION
  Report Type: 
  Country: None (occurrence: None)
  Receive Date: 20100406
  Receipt Date: 20100330
  Transmission Date: 20101027
  Serious: Yes (Hospitalization)
  Sender: FDA-Public Use
  Company Number: FR-PFIZER INC-2010040391

PATIENT
  Age: 64 Year
  Sex: Male

DRUGS (6)
  1. SOLU-MEDROL [Suspect]
     Dosage: 80 MG, SINGLE
     Route: 042
     Dates: start: 20100223, end: 20100223
  2. OXALIPLATIN [Suspect]
     Dosage: 130 MG, UNK
     Route: 042
     Dates: start: 20100223, end: 20100223
  3. TOMUDEX [Suspect]
     Dosage: 6 MG, SINGLE
     Route: 042
     Dates: start: 20100223, end: 20100223
  4. MAGNESIUM SULFATE HEPTAHYDRATE [Suspect]
     Dosage: 1 G, SINGLE
     Dates: start: 20100223, end: 20100223
  5. CALCIUM GLUCONATE [Suspect]
     Dosage: 1 G, SINGLE
     Route: 042
     Dates: start: 20100223, end: 20100223
  6. ZOPHREN [Suspect]
     Dosage: 8 MG, SINGLE
     Route: 042
     Dates: start: 20100223, end: 20100223

REACTIONS (5)
  - ABDOMINAL PAIN [None]
  - HEPATIC ENZYME INCREASED [None]
  - HOT FLUSH [None]
  - MALAISE [None]
  - RENAL IMPAIRMENT [None]
